FAERS Safety Report 13134984 (Version 1)
Quarter: 2017Q1

REPORT INFORMATION
  Report Type: Report from Study
  Country: GB (occurrence: GB)
  Receive Date: 20170120
  Receipt Date: 20170120
  Transmission Date: 20170428
  Serious: Yes (Other)
  Sender: FDA-Public Use
  Company Number: PHFR2017GB000654

PATIENT
  Age: 84 Year
  Sex: Female
  Weight: 66 kg

DRUGS (7)
  1. ASPIRIN. [Concomitant]
     Active Substance: ASPIRIN
     Indication: MYOCARDIAL ISCHAEMIA
     Dosage: 75 MG, QD
     Route: 048
     Dates: start: 2005
  2. BISOPROLOL [Concomitant]
     Active Substance: BISOPROLOL
     Indication: MYOCARDIAL ISCHAEMIA
     Dosage: 5 MG, QD
     Route: 048
     Dates: start: 2005
  3. SALBUTAMOL [Concomitant]
     Active Substance: ALBUTEROL
     Indication: CHRONIC OBSTRUCTIVE PULMONARY DISEASE
     Dosage: 100 UG, UNK
     Route: 055
  4. CARBOCYSTEINE [Concomitant]
     Active Substance: CARBOCYSTEINE
     Indication: CHRONIC OBSTRUCTIVE PULMONARY DISEASE
     Route: 065
  5. HYDROXOCOBALAMIN [Concomitant]
     Active Substance: HYDROXOCOBALAMIN
     Indication: PERNICIOUS ANAEMIA
     Dosage: 1 MG/ML, UNK
     Route: 030
     Dates: start: 201609
  6. TELMISARTAN. [Concomitant]
     Active Substance: TELMISARTAN
     Indication: MYOCARDIAL ISCHAEMIA
     Dosage: QD
     Route: 048
     Dates: start: 200611
  7. SEEBRI BREEZHALER [Suspect]
     Active Substance: GLYCOPYRROLATE
     Indication: CHRONIC OBSTRUCTIVE PULMONARY DISEASE
     Dosage: UNK UNK, QD
     Route: 055
     Dates: start: 201606

REACTIONS (2)
  - Glossodynia [Not Recovered/Not Resolved]
  - Multiple allergies [Unknown]

NARRATIVE: CASE EVENT DATE: 201606
